FAERS Safety Report 6467867-7 (Version None)
Quarter: 2009Q4

REPORT INFORMATION
  Report Type: 
  Country: None (occurrence: None)
  Receive Date: 20091202
  Receipt Date: 20091126
  Transmission Date: 20100525
  Serious: Yes (Hospitalization)
  Sender: FDA-Public Use
  Company Number: FR-B.I. PHARMACEUTICALS,INC./RIDGEFIELD-2007-BP-19527YA

PATIENT
  Sex: Male

DRUGS (2)
  1. OMIX L.P. [Suspect]
     Route: 048
  2. COOLMETEC [Suspect]
     Route: 048

REACTIONS (1)
  - PEMPHIGOID [None]
